FAERS Safety Report 5153142-X (Version None)
Quarter: 2006Q4

REPORT INFORMATION
  Report Type: 
  Country: None (occurrence: None)
  Receive Date: 20061117
  Receipt Date: 20061106
  Transmission Date: 20070319
  Serious: Yes (Hospitalization)
  Sender: FDA-Public Use
  Company Number: FR-GLAXOSMITHKLINE-B0446680A

PATIENT
  Age: 39 Year
  Sex: Female

DRUGS (3)
  1. AUGMENTIN '125' [Suspect]
     Indication: DISSEMINATED TUBERCULOSIS
     Dosage: 3G PER DAY
     Route: 042
     Dates: start: 20060906, end: 20060915
  2. PIRILENE [Suspect]
     Indication: DISSEMINATED TUBERCULOSIS
     Dosage: 4UNIT PER DAY
     Route: 048
     Dates: start: 20060906, end: 20060915
  3. ERYTHROMYCIN [Suspect]
     Indication: DISSEMINATED TUBERCULOSIS
     Dosage: 1.5G PER DAY
     Route: 042
     Dates: start: 20060906, end: 20060915

REACTIONS (4)
  - ALANINE AMINOTRANSFERASE INCREASED [None]
  - ASPARTATE AMINOTRANSFERASE INCREASED [None]
  - HEPATITIS B [None]
  - HEPATOCELLULAR DAMAGE [None]
